FAERS Safety Report 6747453-1 (Version None)
Quarter: 2010Q2

REPORT INFORMATION
  Report Type: 
  Country: None (occurrence: None)
  Receive Date: 20100528
  Receipt Date: 20100517
  Transmission Date: 20101027
  Serious: Yes (Hospitalization)
  Sender: FDA-Public Use
  Company Number: US-JNJFOC-20100508476

PATIENT
  Sex: Male
  Weight: 37.3 kg

DRUGS (7)
  1. REMICADE [Suspect]
     Indication: CROHN'S DISEASE
     Route: 042
  2. PREDNISONE TAB [Concomitant]
  3. TACROLIMUS [Concomitant]
  4. FOLIC ACID [Concomitant]
  5. ONDANSETRON [Concomitant]
  6. DICYCLOMINE [Concomitant]
  7. PROBIOTICS [Concomitant]

REACTIONS (1)
  - INTESTINAL FISTULA [None]
